FAERS Safety Report 8373631-4 (Version None)
Quarter: 2012Q2

REPORT INFORMATION
  Report Type: 
  Country: None (occurrence: None)
  Receive Date: 20120517
  Receipt Date: 20120426
  Transmission Date: 20120825
  Serious: Yes (Hospitalization)
  Sender: FDA-Public Use
  Company Number: JPI-P-021361

PATIENT
  Age: 58 Year
  Sex: Female

DRUGS (4)
  1. POTASSIUM CHLORIDE [Suspect]
     Indication: PRODUCT USED FOR UNKNOWN INDICATION
     Dates: start: 20120401, end: 20120401
  2. XYREM [Suspect]
     Indication: NARCOLEPSY
     Dosage: 4.5 GM (2.25 GM,2 IN 1 D),ORAL ; 4.5 GM (2.25 GM,INTERMITTENT USE WHILE IN HOSPITAL),ORAL
     Route: 048
     Dates: start: 20120415, end: 20120422
  3. XYREM [Suspect]
     Indication: NARCOLEPSY
     Dosage: 4.5 GM (2.25 GM,2 IN 1 D),ORAL ; 4.5 GM (2.25 GM,INTERMITTENT USE WHILE IN HOSPITAL),ORAL
     Route: 048
     Dates: start: 20080412, end: 20120414
  4. COUGH DROP [Suspect]
     Indication: NASOPHARYNGITIS

REACTIONS (5)
  - LUNG DISORDER [None]
  - NASOPHARYNGITIS [None]
  - BLOOD GLUCOSE INCREASED [None]
  - ABDOMINAL PAIN UPPER [None]
  - PALPITATIONS [None]
